FAERS Safety Report 25553323 (Version 1)
Quarter: 2025Q3

REPORT INFORMATION
  Report Type: Spontaneous
  Country: US (occurrence: US)
  Receive Date: 20250715
  Receipt Date: 20250715
  Transmission Date: 20251020
  Serious: No
  Sender: ABBVIE
  Company Number: US-ABBVIE-6369491

PATIENT
  Age: 54 Year
  Sex: Female
  Weight: 70 kg

DRUGS (5)
  1. HUMIRA [Suspect]
     Active Substance: ADALIMUMAB
     Indication: Rheumatoid arthritis
     Route: 058
     Dates: start: 202103, end: 20220221
  2. PLAQUENIL [Concomitant]
     Active Substance: HYDROXYCHLOROQUINE SULFATE
     Indication: Product used for unknown indication
     Dates: start: 202101
  3. PREDNISONE [Concomitant]
     Active Substance: PREDNISONE
     Indication: Product used for unknown indication
     Dates: start: 202111
  4. COVID-19 vaccine [Concomitant]
     Indication: Product used for unknown indication
     Dates: start: 20210330, end: 20210330
  5. COVID-19 vaccine [Concomitant]
     Indication: Product used for unknown indication
     Dates: start: 20210420, end: 20210420

REACTIONS (1)
  - Drug ineffective [Unknown]

NARRATIVE: CASE EVENT DATE: 20220221
